FAERS Safety Report 8390736-2 (Version None)
Quarter: 2012Q1

REPORT INFORMATION
  Report Type: 
  Country: None (occurrence: None)
  Receive Date: 20120323
  Receipt Date: 20110307
  Transmission Date: 20120608
  Serious: Yes (Other)
  Sender: FDA-Public Use
  Company Number: 163-21880-11031141

PATIENT
  Age: 66 Year
  Sex: Female
  Weight: 98.8842 kg

DRUGS (22)
  1. ALLOPURINOL [Concomitant]
  2. FIBERCON (POLYCARBOPHIL CALCIUM) [Concomitant]
  3. LASIX [Concomitant]
  4. VELCADE (BORTEZOMIB) (TABLETS) [Concomitant]
  5. VESICARE (SOLIFENACIN SUCCINATE) (TABLETS) [Concomitant]
  6. ATIVAN [Concomitant]
  7. POTASSIUM CHLORIDE [Concomitant]
  8. IRON (IRON) (TABLETS) [Concomitant]
  9. ZOMETA (ZOLEDRONIC ACID) (TABLETS) [Concomitant]
  10. CENTRUM (CENTRUM) (TABLETS) [Concomitant]
  11. CLARITIN [Concomitant]
  12. FISH OIL (FISH OIL) [Concomitant]
  13. SYNTHROID [Concomitant]
  14. VITAMIN B + E (VITAMIN B NOS W/VITAMIN E) (TABLETS) [Concomitant]
  15. ASPIRIN [Concomitant]
  16. DECADRON [Concomitant]
  17. FAMVIR [Concomitant]
  18. CALCIUM +D (OS-CAL) [Concomitant]
  19. ZOFRAN [Concomitant]
  20. REVLIMID [Suspect]
     Indication: MULTIPLE MYELOMA
     Dosage: 25 MG, DAILY FOR 14 DAYS, PO
     Route: 048
     Dates: start: 20100701
  21. OXYCONTIN [Concomitant]
  22. NEXIUM [Concomitant]

REACTIONS (2)
  - PNEUMONIA [None]
  - CELLULITIS [None]
